FAERS Safety Report 8927445 (Version 1)
Quarter: 2012Q4

REPORT INFORMATION
  Report Type: 
  Country: US (occurrence: US)
  Receive Date: 20121127
  Receipt Date: 20121127
  Transmission Date: 20130627
  Serious: No
  Sender: FDA-Public Use
  Company Number: US-MYLANLABS-2011S1022466

PATIENT
  Age: 79 Year
  Sex: Male

DRUGS (1)
  1. AMIODARONE HCL FOR INJ [Suspect]
     Route: 042

REACTIONS (2)
  - Extravasation [Not Recovered/Not Resolved]
  - Infusion site extravasation [None]
